FAERS Safety Report 5485204-1 (Version None)
Quarter: 2007Q4

REPORT INFORMATION
  Report Type: 
  Country: None (occurrence: None)
  Receive Date: 20071010
  Receipt Date: 20071010
  Transmission Date: 20080405
  Serious: Yes (Hospitalization)
  Sender: FDA-Public Use
  Company Number: None

PATIENT
  Age: 28 Year
  Sex: Male

DRUGS (4)
  1. ROCEPHIN [Suspect]
     Indication: MENINGITIS
     Dosage: 1 GRAM Q12 HOURS IV
     Route: 042
     Dates: start: 20070822, end: 20070906
  2. ROCEPHIN [Suspect]
     Indication: PNEUMONIA MYCOPLASMAL
     Dosage: 1 GRAM Q12 HOURS IV
     Route: 042
     Dates: start: 20070822, end: 20070906
  3. AZITHROMYCIN [Suspect]
     Indication: MENINGITIS
     Dosage: 500MG DAILY IV
     Route: 042
     Dates: start: 20070822, end: 20070906
  4. AZITHROMYCIN [Suspect]
     Indication: PNEUMONIA MYCOPLASMAL
     Dosage: 500MG DAILY IV
     Route: 042
     Dates: start: 20070822, end: 20070906

REACTIONS (7)
  - BURNING SENSATION [None]
  - DYSPHAGIA [None]
  - PAIN OF SKIN [None]
  - PRURITUS [None]
  - RASH MACULO-PAPULAR [None]
  - SKIN EXFOLIATION [None]
  - TENDERNESS [None]
